FAERS Safety Report 20151545 (Version 1)
Quarter: 2021Q4

REPORT INFORMATION
  Report Type: Spontaneous
  Country: US (occurrence: None)
  Receive Date: 20211203
  Receipt Date: 20211203
  Transmission Date: 20220303
  Serious: Yes (Disabling, Other)
  Sender: FDA-Public Use
  Company Number: None

PATIENT
  Age: 59 Year
  Sex: Male
  Weight: 90 kg

DRUGS (3)
  1. UNSPECIFIED INGREDIENT [Suspect]
     Active Substance: UNSPECIFIED INGREDIENT
     Indication: COVID-19
  2. METOPROLOL [Concomitant]
     Active Substance: METOPROLOL
  3. Allupurinol [Concomitant]

REACTIONS (5)
  - Acne [None]
  - Rash [None]
  - Myalgia [None]
  - Fatigue [None]
  - Skin ulcer [None]

NARRATIVE: CASE EVENT DATE: 20211104
